FAERS Safety Report 22364161 (Version 4)
Quarter: 2024Q2

REPORT INFORMATION
  Report Type: Spontaneous
  Country: US (occurrence: US)
  Receive Date: 20230525
  Receipt Date: 20240530
  Transmission Date: 20240716
  Serious: No
  Sender: FDA-Public Use
  Company Number: US-SA-SAC20230524000241

PATIENT
  Age: 16 Year
  Sex: Male
  Weight: 69.2 kg

DRUGS (3)
  1. DUPIXENT [Suspect]
     Active Substance: DUPILUMAB
     Indication: Eosinophilic oesophagitis
     Dosage: 300 MG, QOW
     Route: 058
  2. DUPIXENT [Suspect]
     Active Substance: DUPILUMAB
     Dosage: 300 MG, QW
     Route: 058
  3. OMNITROPE [Concomitant]
     Active Substance: SOMATROPIN

REACTIONS (3)
  - Injection site urticaria [Unknown]
  - Injection site pain [Unknown]
  - Inappropriate schedule of product administration [Unknown]
